FAERS Safety Report 7481839-5 (Version None)
Quarter: 2011Q2

REPORT INFORMATION
  Report Type: 
  Country: None (occurrence: None)
  Receive Date: 20110506
  Receipt Date: 20110428
  Transmission Date: 20111010
  Serious: Yes (Disabling, Other)
  Sender: FDA-Public Use
  Company Number: TPA2011A01954

PATIENT
  Sex: Female

DRUGS (1)
  1. PREVPAC [Suspect]
     Indication: INFECTION
     Dosage: PER ORAL
     Route: 048
     Dates: start: 20100422

REACTIONS (2)
  - LICHENOID KERATOSIS [None]
  - DEFORMITY [None]
